FAERS Safety Report 6491387-7 (Version None)
Quarter: 2009Q4

REPORT INFORMATION
  Report Type: 
  Country: None (occurrence: None)
  Receive Date: 20091211
  Receipt Date: 20091201
  Transmission Date: 20100525
  Serious: Yes (Other)
  Sender: FDA-Public Use
  Company Number: US-ABBOTT-09P-163-0599916-00

PATIENT
  Sex: Male
  Weight: 76.272 kg

DRUGS (15)
  1. KALETRA [Suspect]
     Indication: HIV TEST POSITIVE
     Dosage: 250MG X 2 BID
     Route: 048
     Dates: start: 20061201, end: 20090901
  2. REYATAZ [Concomitant]
     Indication: HIV INFECTION
     Dates: start: 20090701, end: 20090801
  3. NORVIR [Concomitant]
     Indication: HIV INFECTION
     Dates: start: 20090701, end: 20090801
  4. TRUVADA [Concomitant]
     Indication: HIV INFECTION
     Dates: start: 20090701
  5. ISENTRESS [Concomitant]
     Indication: HIV INFECTION
     Dates: start: 20090801
  6. GEMFIBROZIL [Concomitant]
     Indication: DRUG USE FOR UNKNOWN INDICATION
  7. ASPIRIN [Concomitant]
     Indication: DRUG USE FOR UNKNOWN INDICATION
  8. TRUVADA [Concomitant]
     Indication: DRUG USE FOR UNKNOWN INDICATION
  9. BACTRIM [Concomitant]
     Indication: DRUG USE FOR UNKNOWN INDICATION
  10. SYNTHROID [Concomitant]
     Indication: DRUG USE FOR UNKNOWN INDICATION
  11. CHANTIX [Concomitant]
     Indication: DRUG USE FOR UNKNOWN INDICATION
  12. PROZAC [Concomitant]
     Indication: DRUG USE FOR UNKNOWN INDICATION
  13. SEROQUEL [Concomitant]
     Indication: DRUG USE FOR UNKNOWN INDICATION
  14. UNKNOWN EYE DROP SOLUTION [Concomitant]
     Indication: DRUG USE FOR UNKNOWN INDICATION
     Route: 047
  15. PRILOSEC [Concomitant]
     Indication: GASTROOESOPHAGEAL REFLUX DISEASE

REACTIONS (4)
  - BLOOD TRIGLYCERIDES INCREASED [None]
  - FOREIGN BODY [None]
  - GASTROOESOPHAGEAL REFLUX DISEASE [None]
  - OESOPHAGITIS [None]
